FAERS Safety Report 5012802-1 (Version None)
Quarter: 2006Q2

REPORT INFORMATION
  Report Type: 
  Country: None (occurrence: None)
  Receive Date: 20060530
  Receipt Date: 20060315
  Transmission Date: 20061013
  Serious: No
  Sender: FDA-Public Use
  Company Number: US-BRISTOL-MYERS SQUIBB COMPANY-13316104

PATIENT
  Sex: Male

DRUGS (1)
  1. ERBITUX [Suspect]
     Indication: NEOPLASM MALIGNANT
     Route: 042

REACTIONS (2)
  - ORAL PAIN [None]
  - STOMATITIS [None]
